FAERS Safety Report 18903845 (Version 2)
Quarter: 2021Q1

REPORT INFORMATION
  Report Type: Spontaneous
  Country: US (occurrence: US)
  Receive Date: 20210217
  Receipt Date: 20210301
  Transmission Date: 20210420
  Serious: Yes (Other)
  Sender: FDA-Public Use
  Company Number: US-GLAXOSMITHKLINE-US2021GSK044433

PATIENT
  Sex: Male

DRUGS (19)
  1. RANITIDINE. [Suspect]
     Active Substance: RANITIDINE
     Indication: GASTROOESOPHAGEAL REFLUX DISEASE
     Dosage: 150 MG, QD
     Route: 065
     Dates: start: 200901, end: 201708
  2. RANITIDINE. [Suspect]
     Active Substance: RANITIDINE
     Indication: PAIN
  3. ZANTAC [Suspect]
     Active Substance: RANITIDINE HYDROCHLORIDE
     Indication: GASTROOESOPHAGEAL REFLUX DISEASE
     Dosage: 150 MG, QD
     Route: 065
     Dates: start: 200901, end: 201708
  4. ZANTAC [Suspect]
     Active Substance: RANITIDINE HYDROCHLORIDE
     Indication: MUSCLE SPASMS
  5. ZANTAC [Suspect]
     Active Substance: RANITIDINE HYDROCHLORIDE
     Indication: PAIN
  6. ZANTAC [Suspect]
     Active Substance: RANITIDINE HYDROCHLORIDE
     Indication: MUSCLE SPASMS
  7. RANITIDINE. [Suspect]
     Active Substance: RANITIDINE
     Indication: MUSCLE SPASMS
  8. RANITIDINE. [Suspect]
     Active Substance: RANITIDINE
     Indication: PAIN
  9. RANITIDINE. [Suspect]
     Active Substance: RANITIDINE
     Indication: PAIN
  10. ZANTAC [Suspect]
     Active Substance: RANITIDINE HYDROCHLORIDE
     Indication: GASTROOESOPHAGEAL REFLUX DISEASE
     Dosage: 150 MG, QD
     Route: 065
     Dates: start: 200901, end: 201708
  11. ZANTAC [Suspect]
     Active Substance: RANITIDINE HYDROCHLORIDE
     Indication: PAIN
  12. RANITIDINE CAPSULE [Suspect]
     Active Substance: RANITIDINE
     Indication: PAIN
  13. RANITIDINE. [Suspect]
     Active Substance: RANITIDINE
     Indication: GASTROOESOPHAGEAL REFLUX DISEASE
     Dosage: 150 MG, QD
     Route: 065
     Dates: start: 200901, end: 201708
  14. RANITIDINE CAPSULE [Suspect]
     Active Substance: RANITIDINE
     Indication: MUSCLE SPASMS
  15. RANITIDINE. [Suspect]
     Active Substance: RANITIDINE
     Indication: MUSCLE SPASMS
  16. ZANTAC [Suspect]
     Active Substance: RANITIDINE HYDROCHLORIDE
     Dosage: 150 MG, QD
     Route: 065
     Dates: start: 200901, end: 201708
  17. RANITIDINE. [Suspect]
     Active Substance: RANITIDINE
     Indication: MUSCLE SPASMS
  18. RANITIDINE CAPSULE [Suspect]
     Active Substance: RANITIDINE
     Indication: GASTROOESOPHAGEAL REFLUX DISEASE
     Dosage: 150 MG, QD
     Route: 065
     Dates: start: 200901, end: 201708
  19. RANITIDINE. [Suspect]
     Active Substance: RANITIDINE
     Indication: GASTROOESOPHAGEAL REFLUX DISEASE
     Dosage: 150 MG, QD
     Route: 065
     Dates: start: 200901, end: 201708

REACTIONS (1)
  - Renal cancer [Unknown]
